FAERS Safety Report 8060197-1 (Version None)
Quarter: 2012Q1

REPORT INFORMATION
  Report Type: 
  Country: None (occurrence: None)
  Receive Date: 20120119
  Receipt Date: 20120119
  Transmission Date: 20120608
  Serious: Yes (Hospitalization)
  Sender: FDA-Public Use
  Company Number: None

PATIENT
  Age: 93 Year
  Sex: Female
  Weight: 35 kg

DRUGS (5)
  1. METOPROLOL TARTRATE [Concomitant]
  2. ASPIRIN [Suspect]
     Indication: CORONARY ARTERY DISEASE
     Dosage: 81MG DAILY PO CHRONIC
     Route: 048
  3. COUMADIN [Suspect]
     Indication: ATRIAL FIBRILLATION
     Dosage: 4MG / 6MG  WF / M T TH SAT PO CHRONIC
     Route: 048
  4. FOSINOPRIL SODIUM [Concomitant]
  5. HYDROCHLOROTHIAZIDE [Concomitant]

REACTIONS (7)
  - GASTROINTESTINAL ULCER [None]
  - REFUSAL OF TREATMENT BY RELATIVE [None]
  - INTERNATIONAL NORMALISED RATIO INCREASED [None]
  - HAEMATOCHEZIA [None]
  - SYNCOPE [None]
  - ANAEMIA [None]
  - INTERNATIONAL NORMALISED RATIO DECREASED [None]
